FAERS Safety Report 6256049-X (Version None)
Quarter: 2009Q2

REPORT INFORMATION
  Report Type: 
  Country: None (occurrence: None)
  Receive Date: 20090630
  Receipt Date: 20090630
  Transmission Date: 20091009
  Serious: No
  Sender: FDA-Public Use
  Company Number: None

PATIENT
  Age: 94 Year
  Sex: Male
  Weight: 75.2971 kg

DRUGS (1)
  1. FUROSEMIDE 40MG WATSON [Suspect]
     Indication: CARDIAC FAILURE CHRONIC
     Dosage: 80MG -40 MG TABLET X 2 TABS QAM PO
     Route: 048
     Dates: start: 20090608, end: 20090615

REACTIONS (3)
  - PRODUCT SUBSTITUTION ISSUE [None]
  - WEIGHT DECREASED [None]
  - WEIGHT INCREASED [None]
